FAERS Safety Report 13232202 (Version 1)
Quarter: 2017Q1

REPORT INFORMATION
  Report Type: Spontaneous
  Country: US (occurrence: US)
  Receive Date: 20170214
  Receipt Date: 20170214
  Transmission Date: 20170428
  Serious: No
  Sender: FDA-Public Use
  Company Number: US-BEH-2017078053

PATIENT
  Sex: Female

DRUGS (2)
  1. STIMATE [Suspect]
     Active Substance: DESMOPRESSIN ACETATE
     Indication: MENSTRUAL DISORDER
  2. STIMATE [Suspect]
     Active Substance: DESMOPRESSIN ACETATE
     Indication: COAGULOPATHY
     Dosage: 1 SPRAY EACH NOSTRIL, QD PRN
     Route: 045
     Dates: start: 20140401

REACTIONS (1)
  - Headache [Unknown]
